FAERS Safety Report 19654633 (Version 2)
Quarter: 2021Q3

REPORT INFORMATION
  Report Type: Spontaneous
  Country: US (occurrence: US)
  Receive Date: 20210804
  Receipt Date: 20210824
  Transmission Date: 20211014
  Serious: Yes (Hospitalization, Other)
  Sender: FDA-Public Use
  Company Number: US-009507513-2107USA008142

PATIENT
  Age: 36 Year
  Sex: Female

DRUGS (2)
  1. KEYTRUDA [Suspect]
     Active Substance: PEMBROLIZUMAB
     Indication: OVARIAN CANCER
     Dosage: 200 MILLIGRAM, EVERY THREE WEEKS (Q3W)
     Route: 042
  2. KEYTRUDA [Suspect]
     Active Substance: PEMBROLIZUMAB
     Dosage: 400 MILLIGRAM, EVERY 6 WEEKS.
     Route: 042

REACTIONS (4)
  - Sjogren^s syndrome [Unknown]
  - Hypercalcaemia [Recovering/Resolving]
  - Arthritis [Recovering/Resolving]
  - Off label use [Unknown]
